FAERS Safety Report 10570258 (Version 1)
Quarter: 2014Q4

REPORT INFORMATION
  Report Type: Spontaneous
  Country: US (occurrence: None)
  Receive Date: 20141106
  Receipt Date: 20141106
  Transmission Date: 20150529
  Serious: No
  Sender: FDA-Public Use
  Company Number: None

PATIENT
  Age: 50 Year
  Sex: Female
  Weight: 63.5 kg

DRUGS (8)
  1. ZINC [Concomitant]
     Active Substance: ZINC\ZINC CHLORIDE
  2. NAPROXEN 500 MG TABLET GENERIC [Suspect]
     Active Substance: NAPROXEN
     Indication: PAIN
     Route: 048
     Dates: start: 20140224, end: 20140226
  3. FENNEL SEED [Concomitant]
  4. NATURAL VITAMIN A [Concomitant]
  5. FISH OIL [Concomitant]
     Active Substance: FISH OIL
  6. FERROUS SULFATE [Concomitant]
     Active Substance: FERROUS SULFATE\FERROUS SULFATE, DRIED
  7. COQNI BOOST [Concomitant]
  8. VITAMIN B12 [Concomitant]
     Active Substance: CYANOCOBALAMIN

REACTIONS (1)
  - Anal haemorrhage [None]

NARRATIVE: CASE EVENT DATE: 20140224
